FAERS Safety Report 10082510 (Version 3)
Quarter: 2015Q1

REPORT INFORMATION
  Report Type: Spontaneous
  Country: GB (occurrence: None)
  Receive Date: 20140407
  Receipt Date: 20150108
  Transmission Date: 20150720
  Serious: Yes (Death, Other)
  Sender: FDA-Public Use
  Company Number: 250654

PATIENT
  Age: 66 Year
  Sex: Female

DRUGS (9)
  1. OXALIPLATIN. [Suspect]
     Active Substance: OXALIPLATIN
     Indication: COLORECTAL CANCER METASTATIC
     Route: 042
     Dates: start: 20090119
  2. CEFUROXIME. [Concomitant]
     Active Substance: CEFUROXIME
  3. MORPHINE [Concomitant]
     Active Substance: MORPHINE
  4. CAPECITABINE. [Suspect]
     Active Substance: CAPECITABINE
     Indication: COLORECTAL CANCER METASTATIC
     Dosage: 1650 MG MILLIGRAM(S), 2 DAY
     Route: 048
     Dates: start: 20090119, end: 20090221
  5. CIPROFLOXACIN. [Concomitant]
     Active Substance: CIPROFLOXACIN
  6. BEVACIZUMAB [Suspect]
     Active Substance: BEVACIZUMAB
     Indication: COLORECTAL CANCER METASTATIC
  7. FILGRASTIM [Concomitant]
     Active Substance: FILGRASTIM
  8. HALOPERIDOL. [Concomitant]
     Active Substance: HALOPERIDOL
  9. HYOSCIN N-BUTYLBROMIDE [Concomitant]

REACTIONS (4)
  - Migraine [None]
  - Colitis ischaemic [None]
  - Colitis [None]
  - Diarrhoea [None]

NARRATIVE: CASE EVENT DATE: 20090218
